FAERS Safety Report 6523424-5 (Version None)
Quarter: 2009Q4

REPORT INFORMATION
  Report Type: 
  Country: None (occurrence: None)
  Receive Date: 20091231
  Receipt Date: 20091223
  Transmission Date: 20100525
  Serious: Yes (Hospitalization)
  Sender: FDA-Public Use
  Company Number: IT-ASTRAZENECA-2009SE28269

PATIENT
  Age: 17 Year
  Sex: Female

DRUGS (3)
  1. SEROQUEL [Suspect]
     Indication: DEPRESSION
     Route: 048
     Dates: start: 20091029
  2. LAMICTAL [Suspect]
     Indication: DEPRESSION
     Route: 048
     Dates: start: 20091029, end: 20091117
  3. TAVOR [Suspect]
     Indication: INSOMNIA
     Route: 048
     Dates: start: 20091029

REACTIONS (1)
  - ERYTHEMA [None]
